FAERS Safety Report 9500205 (Version 1)
Quarter: 2013Q3

REPORT INFORMATION
  Report Type: Spontaneous
  Country: US (occurrence: US)
  Receive Date: 20130905
  Receipt Date: 20130905
  Transmission Date: 20140515
  Serious: Yes (Hospitalization)
  Sender: FDA-Public Use
  Company Number: US-ASTRAZENECA-2013SE66630

PATIENT
  Age: 70 Year
  Sex: Female

DRUGS (5)
  1. FASLODEX [Suspect]
     Indication: BREAST CANCER METASTATIC
     Route: 030
     Dates: start: 20130814
  2. FASLODEX [Suspect]
     Indication: BREAST CANCER METASTATIC
     Route: 030
     Dates: start: 20130829
  3. TAMOXIFEN [Suspect]
     Route: 048
  4. CEFLOSPORIN [Concomitant]
  5. VANCOMYCIN [Concomitant]

REACTIONS (2)
  - Rash [Not Recovered/Not Resolved]
  - Pyrexia [Unknown]
